FAERS Safety Report 4846933-3 (Version None)
Quarter: 2005Q4

REPORT INFORMATION
  Report Type: 
  Country: None (occurrence: None)
  Receive Date: 20051202
  Receipt Date: 20051120
  Transmission Date: 20060501
  Serious: Yes (Other)
  Sender: FDA-Public Use
  Company Number: 2005EU002470

PATIENT
  Age: 45 Year
  Sex: Female

DRUGS (2)
  1. PROGRAF [Suspect]
     Indication: RENAL TRANSPLANT
     Dosage: 2.00 MG BID ORAL
     Route: 048
     Dates: start: 20050701
  2. TRIAMCINOLONE [Concomitant]

REACTIONS (2)
  - NECK PAIN [None]
  - NEUROTOXICITY [None]
